FAERS Safety Report 17497704 (Version 1)
Quarter: 2020Q1

REPORT INFORMATION
  Report Type: Spontaneous
  Country: JP (occurrence: JP)
  Receive Date: 20200304
  Receipt Date: 20200304
  Transmission Date: 20200409
  Serious: Yes (Other)
  Sender: FDA-Public Use
  Company Number: JP-PFIZER INC-2020089850

PATIENT

DRUGS (5)
  1. METHOTREXATE. [Suspect]
     Active Substance: METHOTREXATE
     Indication: INTRAVENOUS LEIOMYOMATOSIS
     Dosage: 15 MG, DAILY
     Route: 037
     Dates: start: 20200227
  2. VANCOMYCIN [Suspect]
     Active Substance: VANCOMYCIN
     Dosage: UNK
     Route: 041
  3. MEROPENEM. [Suspect]
     Active Substance: MEROPENEM
     Route: 041
  4. PREDONINE [Suspect]
     Active Substance: PREDNISOLONE
     Indication: INTRAVENOUS LEIOMYOMATOSIS
     Dosage: 20 MG, UNK
  5. CYLOCIDE [Suspect]
     Active Substance: CYTARABINE
     Indication: INTRAVENOUS LEIOMYOMATOSIS
     Dosage: 40 MG, UNK

REACTIONS (1)
  - Renal impairment [Unknown]

NARRATIVE: CASE EVENT DATE: 20200227
